FAERS Safety Report 8935399 (Version 1)
Quarter: 2012Q4

REPORT INFORMATION
  Report Type: Spontaneous
  Country: US (occurrence: None)
  Receive Date: 20121127
  Receipt Date: 20121127
  Transmission Date: 20130627
  Serious: Yes (Hospitalization)
  Sender: FDA-Public Use
  Company Number: None

PATIENT
  Age: 52 Year
  Sex: Male
  Weight: 67.7 kg

DRUGS (1)
  1. CARBAMAZEPINE [Suspect]
     Indication: SEIZURE
     Dosage: 200 MG OTHER PO
     Route: 048
     Dates: start: 20121010, end: 20121015

REACTIONS (4)
  - Toxicity to various agents [None]
  - Mental status changes [None]
  - Fall [None]
  - Contusion [None]
